FAERS Safety Report 25659939 (Version 1)
Quarter: 2025Q3

REPORT INFORMATION
  Report Type: Spontaneous
  Country: CH (occurrence: CH)
  Receive Date: 20250808
  Receipt Date: 20250808
  Transmission Date: 20251020
  Serious: Yes (Death, Other)
  Sender: AMGEN
  Company Number: CH-AMGEN-CHESP2025152979

PATIENT

DRUGS (1)
  1. PROLIA [Suspect]
     Active Substance: DENOSUMAB
     Indication: Osteoporosis postmenopausal
     Dosage: 60 MILLIGRAM, Q6MO
     Route: 058

REACTIONS (55)
  - Death [Fatal]
  - Thoracic vertebral fracture [Unknown]
  - Abscess jaw [Unknown]
  - Spinal fracture [Unknown]
  - Renal failure [Unknown]
  - Cataract [Unknown]
  - COVID-19 [Unknown]
  - Oral herpes [Unknown]
  - Intervertebral disc disorder [Unknown]
  - Spinal pain [Unknown]
  - Intervertebral disc protrusion [Unknown]
  - Activated partial thromboplastin time prolonged [Unknown]
  - Adjusted calcium decreased [Unknown]
  - Creatinine renal clearance decreased [Unknown]
  - Injection site reaction [Unknown]
  - Glomerular filtration rate decreased [Unknown]
  - Drug specific antibody present [Unknown]
  - Cervical radiculopathy [Unknown]
  - Hypersensitivity [Unknown]
  - Pain in jaw [Unknown]
  - Influenza [Unknown]
  - Viral infection [Unknown]
  - Sinusitis [Unknown]
  - Conjunctivitis [Unknown]
  - Gastroenteritis [Unknown]
  - Osteoarthritis [Unknown]
  - Diarrhoea [Unknown]
  - Nausea [Unknown]
  - Hiatus hernia [Unknown]
  - Contusion [Unknown]
  - Cough [Unknown]
  - Dyspnoea [Unknown]
  - Rhinitis [Unknown]
  - Nasopharyngitis [Unknown]
  - Bronchitis [Unknown]
  - Cystitis [Unknown]
  - Pharyngitis [Unknown]
  - Herpes zoster [Unknown]
  - Arthralgia [Unknown]
  - Abdominal pain upper [Unknown]
  - Headache [Unknown]
  - Dizziness [Unknown]
  - Asthenia [Unknown]
  - Hypertension [Unknown]
  - Anaemia [Unknown]
  - Upper respiratory tract infection [Unknown]
  - Muscle spasms [Unknown]
  - Urinary tract infection [Unknown]
  - Constipation [Unknown]
  - Sciatica [Unknown]
  - Calcium ionised decreased [Unknown]
  - Alopecia [Unknown]
  - Musculoskeletal pain [Unknown]
  - Pain in extremity [Unknown]
  - Hypocalcaemia [Unknown]
